FAERS Safety Report 9225184 (Version 1)
Quarter: 2013Q1

REPORT INFORMATION
  Report Type: Spontaneous
  Country: US (occurrence: None)
  Receive Date: 20120912
  Receipt Date: 20120912
  Transmission Date: 20140127
  Serious: No
  Sender: FDA-Public Use
  Company Number: 2012SP031302

PATIENT
  Sex: Female

DRUGS (1)
  1. SAPHRIS (10 MG) [Suspect]
     Indication: BIPOLAR DISORDER
     Route: 060

REACTIONS (2)
  - Oral mucosal blistering [None]
  - Tongue blistering [None]
